FAERS Safety Report 19440392 (Version 3)
Quarter: 2021Q4

REPORT INFORMATION
  Report Type: Report from Study
  Country: US (occurrence: US)
  Receive Date: 20210621
  Receipt Date: 20211004
  Transmission Date: 20220304
  Serious: No
  Sender: FDA-Public Use
  Company Number: NVSC2021US131342

PATIENT
  Sex: Male

DRUGS (2)
  1. KESIMPTA [Suspect]
     Active Substance: OFATUMUMAB
     Indication: Relapsing multiple sclerosis
     Dosage: UNK UNK, QW
     Route: 058
     Dates: start: 20210604
  2. KESIMPTA [Suspect]
     Active Substance: OFATUMUMAB
     Dosage: UNK UNK, QW (MAINTENANCE DOSE)
     Route: 058
     Dates: start: 20210702

REACTIONS (4)
  - Hypersomnia [Unknown]
  - Influenza like illness [Unknown]
  - Fatigue [Unknown]
  - Myalgia [Unknown]
